FAERS Safety Report 11835638 (Version 2)
Quarter: 2016Q1

REPORT INFORMATION
  Report Type: Spontaneous
  Country: US (occurrence: US)
  Receive Date: 20151215
  Receipt Date: 20160105
  Transmission Date: 20160525
  Serious: No
  Sender: FDA-Public Use
  Company Number: US-BAYER-2015-483032

PATIENT
  Age: 24 Year
  Sex: Female

DRUGS (2)
  1. SKYLA [Suspect]
     Active Substance: LEVONORGESTREL
     Dosage: 14 MCG/24HR, CONT
     Route: 015
     Dates: start: 20151106, end: 20151106
  2. MIRENA [Suspect]
     Active Substance: LEVONORGESTREL
     Indication: CONTRACEPTION
     Dosage: 20 MCG/24HR, CONT
     Route: 015
     Dates: start: 20151106, end: 20151106

REACTIONS (5)
  - Device issue [None]
  - Post procedural discomfort [None]
  - Procedural pain [None]
  - Procedural pain [None]
  - Device difficult to use [None]

NARRATIVE: CASE EVENT DATE: 20151106
